FAERS Safety Report 9562538 (Version 2)
Quarter: 2013Q4

REPORT INFORMATION
  Report Type: Spontaneous
  Country: DE (occurrence: DE)
  Receive Date: 20130927
  Receipt Date: 20131203
  Transmission Date: 20140711
  Serious: Yes (Hospitalization)
  Sender: FDA-Public Use
  Company Number: DE-TEVA-434315GER

PATIENT
  Age: 77 Year
  Sex: Female

DRUGS (1)
  1. DOXY-M-RATIOPHARM 200 MG TABLETTEN [Suspect]
     Route: 048
     Dates: end: 20130812

REACTIONS (5)
  - Creutzfeldt-Jakob disease [Not Recovered/Not Resolved]
  - Ocular hypertension [Not Recovered/Not Resolved]
  - Eye inflammation [Not Recovered/Not Resolved]
  - Visual impairment [Not Recovered/Not Resolved]
  - General physical health deterioration [Not Recovered/Not Resolved]
